FAERS Safety Report 7260252-X (Version None)
Quarter: 2011Q1

REPORT INFORMATION
  Report Type: 
  Country: None (occurrence: None)
  Receive Date: 20110130
  Receipt Date: 20100909
  Transmission Date: 20110831
  Serious: No
  Sender: FDA-Public Use
  Company Number: US-ABBOTT-10P-163-0669962-00

PATIENT
  Age: 31 Year
  Sex: Female

DRUGS (4)
  1. PLAQUENIL [Concomitant]
     Indication: RHEUMATOID ARTHRITIS
  2. HUMIRA [Suspect]
     Indication: RHEUMATOID ARTHRITIS
     Dates: start: 20100801
  3. VICODIN [Concomitant]
     Indication: PAIN
  4. ULTRAM [Concomitant]
     Indication: PAIN

REACTIONS (2)
  - SWELLING [None]
  - JOINT STIFFNESS [None]
